FAERS Safety Report 4983768-5 (Version None)
Quarter: 2006Q1

REPORT INFORMATION
  Report Type: 
  Country: None (occurrence: None)
  Receive Date: 20060301
  Receipt Date: 20051227
  Transmission Date: 20060701
  Serious: No
  Sender: FDA-Public Use
  Company Number: S05-USA-05357-01

PATIENT
  Age: 88 Year
  Sex: Female

DRUGS (5)
  1. NAMENDA [Suspect]
     Indication: AMNESIA
     Dosage: 5 MG QD PO
     Route: 048
     Dates: start: 20051220, end: 20051226
  2. NAMENDA [Suspect]
     Indication: AMNESIA
     Dosage: 5 MG BID PO
     Route: 048
     Dates: start: 20051227
  3. AVALIDE (IRBESARTAN) [Concomitant]
  4. COUMADIN [Concomitant]
  5. VITAMINS [Concomitant]

REACTIONS (1)
  - DIZZINESS [None]
